FAERS Safety Report 5939260-4 (Version None)
Quarter: 2008Q4

REPORT INFORMATION
  Report Type: 
  Country: None (occurrence: None)
  Receive Date: 20081103
  Receipt Date: 20081023
  Transmission Date: 20090506
  Serious: Yes (Death)
  Sender: FDA-Public Use
  Company Number: US-JNJCH-2008053253

PATIENT
  Age: 4 Month
  Sex: Female

DRUGS (4)
  1. PSEUDOEPHEDRINE HCL [Suspect]
     Indication: DRUG USE FOR UNKNOWN INDICATION
     Dosage: TEXT:UNSPECIFIED
     Route: 048
  2. DEXTROMETHORPHAN [Suspect]
     Indication: DRUG USE FOR UNKNOWN INDICATION
     Dosage: TEXT:UNSPECIFIED
     Route: 048
  3. CARBINOXAMINE [Suspect]
     Indication: DRUG USE FOR UNKNOWN INDICATION
     Dosage: TEXT:UNSPECIFIED
     Route: 065
  4. ATROPINE [Suspect]
     Indication: DRUG USE FOR UNKNOWN INDICATION
     Dosage: TEXT:UNSPECIFIED
     Route: 065

REACTIONS (2)
  - SUDDEN INFANT DEATH SYNDROME [None]
  - WRONG DRUG ADMINISTERED [None]
